FAERS Safety Report 18580973 (Version 1)
Quarter: 2020Q4

REPORT INFORMATION
  Report Type: Spontaneous
  Country: FR (occurrence: FR)
  Receive Date: 20201204
  Receipt Date: 20201204
  Transmission Date: 20210114
  Serious: Yes (Hospitalization, Other)
  Sender: FDA-Public Use
  Company Number: FR-PFIZER INC-2020473993

PATIENT
  Age: 72 Year
  Sex: Male

DRUGS (4)
  1. DAPTOMYCIN. [Concomitant]
     Active Substance: DAPTOMYCIN
     Indication: INFECTION
     Dosage: 800 MG, 1X/DAY
     Route: 042
     Dates: start: 20201106
  2. LOVENOX [Concomitant]
     Active Substance: ENOXAPARIN SODIUM
     Indication: PROPHYLAXIS
     Dosage: 4000 IU, 1X/DAY
     Route: 058
     Dates: start: 20201106
  3. OXYCODONE [Suspect]
     Active Substance: OXYCODONE
     Indication: PROCEDURAL PAIN
     Dosage: UNK
     Route: 048
     Dates: start: 20201106, end: 20201107
  4. LINEZOLID. [Suspect]
     Active Substance: LINEZOLID
     Indication: INFECTION
     Dosage: 1200 MG, 1X/DAY
     Route: 042
     Dates: start: 20201106, end: 20201108

REACTIONS (1)
  - Pancreatitis [Recovering/Resolving]

NARRATIVE: CASE EVENT DATE: 20201106
